FAERS Safety Report 4309152-5 (Version None)
Quarter: 2004Q1

REPORT INFORMATION
  Report Type: 
  Country: None (occurrence: None)
  Receive Date: 20040301
  Receipt Date: 20040213
  Transmission Date: 20041129
  Serious: Yes (Other)
  Sender: FDA-Public Use
  Company Number: S04-USA-00829-01

PATIENT
  Age: 73 Year
  Sex: Female

DRUGS (11)
  1. NAMENDA [Suspect]
     Indication: DEMENTIA ALZHEIMER'S TYPE
     Dosage: 5 MG BID PO
     Route: 048
     Dates: start: 20040123, end: 20040210
  2. NAMENDA [Suspect]
     Indication: DEMENTIA ALZHEIMER'S TYPE
     Dosage: 5 MG QD PO
     Route: 048
     Dates: start: 20040211
  3. ARICEPT [Concomitant]
  4. DIOVAN [Concomitant]
  5. RESTORIL [Concomitant]
  6. EXELON [Concomitant]
  7. RISPERDAL [Concomitant]
  8. HALDOL [Concomitant]
  9. COGENTIN [Concomitant]
  10. PROCARDIA XL [Concomitant]
  11. PAXIL (PAROXETINE HYDROHCLORIDE) [Concomitant]

REACTIONS (3)
  - BLOOD PRESSURE SYSTOLIC INCREASED [None]
  - DIARRHOEA [None]
  - EPILEPSY [None]
